FAERS Safety Report 5415349-3 (Version None)
Quarter: 2007Q3

REPORT INFORMATION
  Report Type: 
  Country: None (occurrence: None)
  Receive Date: 20070815
  Receipt Date: 20070806
  Transmission Date: 20080115
  Serious: Yes (Other)
  Sender: FDA-Public Use
  Company Number: GB-AVENTIS-200713892EU

PATIENT
  Age: 75 Year
  Sex: Male

DRUGS (3)
  1. INDAPAMIDE [Suspect]
     Indication: HYPERTENSION
  2. PERINDOPRIL ERBUMINE [Concomitant]
     Indication: HYPERTENSION
  3. ATENOLOL [Concomitant]
     Indication: HYPERTENSION

REACTIONS (1)
  - HYPERPARATHYROIDISM [None]
